FAERS Safety Report 8811834 (Version 1)
Quarter: 2012Q4

REPORT INFORMATION
  Report Type: 
  Country: GB (occurrence: GB)
  Receive Date: 20120927
  Receipt Date: 20120927
  Transmission Date: 20130627
  Serious: Yes (Other)
  Sender: FDA-Public Use
  Company Number: GB-GLAXOSMITHKLINE-B0831190A

PATIENT
  Sex: Male

DRUGS (1)
  1. SEROXAT [Suspect]
     Dates: start: 2002

REACTIONS (7)
  - Suicidal ideation [Unknown]
  - Aggression [Unknown]
  - Withdrawal syndrome [Unknown]
  - Emotional poverty [Unknown]
  - Panic attack [Unknown]
  - Social avoidant behaviour [Unknown]
  - Social avoidant behaviour [Unknown]
